FAERS Safety Report 6801268-4 (Version None)
Quarter: 2010Q2

REPORT INFORMATION
  Report Type: 
  Country: None (occurrence: None)
  Receive Date: 20100629
  Receipt Date: 20100426
  Transmission Date: 20101027
  Serious: No
  Sender: FDA-Public Use
  Company Number: A0852007A

PATIENT
  Sex: Female

DRUGS (3)
  1. LAMICTAL XR [Suspect]
     Indication: EPILEPSY
     Dosage: 300MG PER DAY
     Route: 048
     Dates: start: 20100225
  2. TRILEPTAL [Concomitant]
     Dosage: 1800U PER DAY
     Route: 048
  3. PRIMIDONE [Concomitant]
     Dosage: 625MG PER DAY

REACTIONS (4)
  - DERMATITIS CONTACT [None]
  - RASH [None]
  - RASH MACULAR [None]
  - RASH MACULO-PAPULAR [None]
